FAERS Safety Report 17044484 (Version 3)
Quarter: 2020Q1

REPORT INFORMATION
  Report Type: Spontaneous
  Country: US (occurrence: US)
  Receive Date: 20191118
  Receipt Date: 20200120
  Transmission Date: 20200409
  Serious: Yes (Death, Other)
  Sender: FDA-Public Use
  Company Number: US-ENDO PHARMACEUTICALS INC-2019-109745

PATIENT
  Sex: Male
  Weight: 131.52 kg

DRUGS (1)
  1. XIAFLEX [Suspect]
     Active Substance: COLLAGENASE CLOSTRIDIUM HISTOLYTICUM
     Indication: PEYRONIE^S DISEASE
     Dosage: 0.58 MG, UNKNOWN (CYCLE 1)
     Route: 026
     Dates: start: 20191007, end: 20191010

REACTIONS (3)
  - Death [Fatal]
  - Neoplasm malignant [Unknown]
  - Back disorder [Unknown]

NARRATIVE: CASE EVENT DATE: 2019
